FAERS Safety Report 11525206 (Version 1)
Quarter: 2015Q3

REPORT INFORMATION
  Report Type: Other
  Country: CH (occurrence: CH)
  Receive Date: 20150918
  Receipt Date: 20150918
  Transmission Date: 20151125
  Serious: Yes (Death)
  Sender: FDA-Public Use
  Company Number: CH-B. BRAUN MEDICAL INC.-1042103

PATIENT
  Age: 59 Year
  Sex: Male

DRUGS (3)
  1. HEPARIN SODIUM IN DEXTROSE [Suspect]
     Active Substance: HEPARIN SODIUM
  2. ASPIRIN. [Concomitant]
     Active Substance: ASPIRIN
     Route: 048
  3. ARGATROBAN. [Concomitant]
     Active Substance: ARGATROBAN

REACTIONS (2)
  - Heparin-induced thrombocytopenia [Fatal]
  - Cardiac ventricular thrombosis [Fatal]
